FAERS Safety Report 5595054-3 (Version None)
Quarter: 2008Q1

REPORT INFORMATION
  Report Type: 
  Country: None (occurrence: None)
  Receive Date: 20080117
  Receipt Date: 20080109
  Transmission Date: 20080703
  Serious: Yes (Other)
  Sender: FDA-Public Use
  Company Number: JP-AVENTIS-200810080JP

PATIENT
  Age: 66 Year
  Sex: Female

DRUGS (4)
  1. TAXOTERE [Suspect]
     Dates: start: 20070807, end: 20070807
  2. FLUOROURACIL [Concomitant]
     Dosage: DOSE: 4 COURSES
     Dates: start: 20070424
  3. EPIRUBICIN [Concomitant]
     Dosage: DOSE: 4 COURSES
     Dates: start: 20070424
  4. CYCLOPHOSPHAMIDE [Concomitant]
     Dosage: DOSE: 4 COURSES
     Dates: start: 20070424

REACTIONS (1)
  - NECROTISING FASCIITIS [None]
